FAERS Safety Report 8742761 (Version 4)
Quarter: 2013Q2

REPORT INFORMATION
  Report Type: Report from Study
  Country: US (occurrence: US)
  Receive Date: 20120824
  Receipt Date: 20130627
  Transmission Date: 20140414
  Serious: Yes (Hospitalization, Other)
  Sender: FDA-Public Use
  Company Number: US-ABBOTT-12P-163-0968882-00

PATIENT
  Sex: Female
  Weight: 103.97 kg

DRUGS (12)
  1. HUMIRA [Suspect]
     Indication: PSORIASIS
     Dates: start: 2009, end: 201004
  2. HUMIRA [Suspect]
     Dosage: STARTED WITH LOADING DOSE
     Dates: start: 201006, end: 201009
  3. HUMIRA [Suspect]
     Dosage: STARTED WITH LOADING DOSE
     Dates: start: 201011, end: 201109
  4. HUMIRA [Suspect]
     Dosage: STARTED WITH LOADING DOSE
     Dates: start: 201209, end: 201301
  5. HUMIRA [Suspect]
  6. AVONEX [Suspect]
  7. PRENATAL VITAMINS [Concomitant]
     Indication: PRODUCT USED FOR UNKNOWN INDICATION
  8. PROTONIX [Concomitant]
     Indication: PRODUCT USED FOR UNKNOWN INDICATION
  9. STOOL SOFTENER [Concomitant]
     Indication: PRODUCT USED FOR UNKNOWN INDICATION
  10. PHENTERMINE [Concomitant]
     Indication: WEIGHT CONTROL
  11. BACLOFEN [Concomitant]
     Indication: PRODUCT USED FOR UNKNOWN INDICATION
  12. VITAMIN D3 [Concomitant]
     Indication: PRODUCT USED FOR UNKNOWN INDICATION

REACTIONS (17)
  - Dehydration [Recovered/Resolved]
  - Multiple sclerosis [Not Recovered/Not Resolved]
  - False labour [Unknown]
  - Uterine contractions during pregnancy [Unknown]
  - Psoriasis [Unknown]
  - Insomnia [Recovering/Resolving]
  - Headache [Recovering/Resolving]
  - Depression [Recovering/Resolving]
  - Anxiety [Recovering/Resolving]
  - Injection site pain [Unknown]
  - Injection site haemorrhage [Unknown]
  - Device malfunction [Unknown]
  - Drug dose omission [Unknown]
  - Psoriasis [Unknown]
  - Panic attack [Recovering/Resolving]
  - Hypertension [Unknown]
  - Constipation [Recovered/Resolved]
